FAERS Safety Report 8139295-X (Version None)
Quarter: 2012Q1

REPORT INFORMATION
  Report Type: 
  Country: None (occurrence: None)
  Receive Date: 20120215
  Receipt Date: 20120214
  Transmission Date: 20120608
  Serious: Yes (Other)
  Sender: FDA-Public Use
  Company Number: IT-BAYER-2012-014471

PATIENT

DRUGS (2)
  1. NEXAVAR [Suspect]
     Dosage: UNK
  2. NEXAVAR [Suspect]
     Indication: HEPATIC NEOPLASM MALIGNANT
     Dosage: DAILY DOSE 800 MG
     Route: 048
     Dates: start: 20111201

REACTIONS (2)
  - DERMATITIS [None]
  - ENCEPHALOPATHY [None]
